FAERS Safety Report 17565808 (Version 1)
Quarter: 2020Q1

REPORT INFORMATION
  Report Type: Spontaneous
  Country: GB (occurrence: GB)
  Receive Date: 20200320
  Receipt Date: 20200320
  Transmission Date: 20200409
  Serious: Yes (Other)
  Sender: FDA-Public Use
  Company Number: GB-PFIZER INC-2020115908

PATIENT
  Age: 55 Year
  Sex: Male

DRUGS (2)
  1. TEICOPLANIN [Suspect]
     Active Substance: TEICOPLANIN
     Indication: ANAESTHESIA
     Dosage: UNK
     Route: 042
  2. CIPROFLOXACIN. [Suspect]
     Active Substance: CIPROFLOXACIN
     Indication: ANTIBIOTIC THERAPY
     Dosage: UNK
     Route: 042

REACTIONS (2)
  - Hypotension [Recovered/Resolved]
  - Urticaria [Recovering/Resolving]
